FAERS Safety Report 15161241 (Version 1)
Quarter: 2018Q3

REPORT INFORMATION
  Report Type: Report from Study
  Country: US (occurrence: US)
  Receive Date: 20180718
  Receipt Date: 20180718
  Transmission Date: 20181010
  Serious: No
  Sender: FDA-Public Use
  Company Number: US-AMGEN-USASP2011023583

PATIENT
  Age: 59 Year
  Sex: Female

DRUGS (2)
  1. ENBREL [Suspect]
     Active Substance: ETANERCEPT
     Indication: RHEUMATOID ARTHRITIS
     Dosage: 50 MG, QWK
     Dates: start: 20090601
  2. TREXALL [Concomitant]
     Active Substance: METHOTREXATE SODIUM
     Dosage: 1 MG, QWK
     Dates: start: 20090601

REACTIONS (8)
  - Rheumatoid arthritis [Unknown]
  - Staphylococcal infection [Recovered/Resolved]
  - Vascular insufficiency [Not Recovered/Not Resolved]
  - Fatigue [Not Recovered/Not Resolved]
  - Dyspnoea [Not Recovered/Not Resolved]
  - Eye infection [Unknown]
  - Herpes zoster [Recovered/Resolved]
  - Bronchitis [Recovered/Resolved]

NARRATIVE: CASE EVENT DATE: 200911
